FAERS Safety Report 18734534 (Version 1)
Quarter: 2021Q1

REPORT INFORMATION
  Report Type: Spontaneous
  Country: US (occurrence: US)
  Receive Date: 20210112
  Receipt Date: 20210112
  Transmission Date: 20210419
  Serious: No
  Sender: FDA-Public Use
  Company Number: None

PATIENT
  Age: 39 Year
  Sex: Female

DRUGS (1)
  1. LUPRON DEPOT [Suspect]
     Active Substance: LEUPROLIDE ACETATE
     Indication: UTERINE LEIOMYOMA
     Dosage: ?          OTHER ROUTE:IM?
     Route: 030
     Dates: start: 20201221

REACTIONS (4)
  - Vaginal discharge [None]
  - Insomnia [None]
  - Vulvovaginal pain [None]
  - Vaginal haemorrhage [None]

NARRATIVE: CASE EVENT DATE: 20210105
